FAERS Safety Report 6835798-6 (Version None)
Quarter: 2010Q3

REPORT INFORMATION
  Report Type: 
  Country: None (occurrence: None)
  Receive Date: 20100713
  Receipt Date: 20100706
  Transmission Date: 20110219
  Serious: Yes (Other)
  Sender: FDA-Public Use
  Company Number: US-BAYER-201017706BCC

PATIENT
  Age: 17 Year
  Sex: Female

DRUGS (1)
  1. MIDOL [Suspect]
     Indication: DYSMENORRHOEA
     Route: 048
     Dates: start: 20100705

REACTIONS (2)
  - GAIT DEVIATION [None]
  - INSOMNIA [None]
